FAERS Safety Report 10592381 (Version 2)
Quarter: 2014Q4

REPORT INFORMATION
  Report Type: Spontaneous
  Country: JP (occurrence: None)
  Receive Date: 20141117
  Receipt Date: 20141210
  Transmission Date: 20150529
  Serious: Yes (Hospitalization)
  Sender: FDA-Public Use
  Company Number: JP-017549

PATIENT
  Age: 85 Year
  Sex: Male

DRUGS (2)
  1. CASODEX [Concomitant]
     Active Substance: BICALUTAMIDE
  2. DEGARELIX [Suspect]
     Active Substance: DEGARELIX
     Indication: PROSTATE CANCER
     Route: 058
     Dates: start: 20130819, end: 20130819

REACTIONS (1)
  - Pneumonia aspiration [None]

NARRATIVE: CASE EVENT DATE: 20130924
